FAERS Safety Report 8841722 (Version 1)
Quarter: 2012Q4

REPORT INFORMATION
  Report Type: 
  Country: GB (occurrence: GB)
  Receive Date: 20121016
  Receipt Date: 20121016
  Transmission Date: 20130627
  Serious: Yes (Hospitalization)
  Sender: FDA-Public Use
  Company Number: GB-BAYER-2012-107031

PATIENT
  Age: 30 Year
  Sex: Female

DRUGS (4)
  1. INTERFERON BETA - 1B [Suspect]
     Indication: MULTIPLE SCLEROSIS
     Dosage: 44 ?g, TIW
     Route: 058
  2. OMEPRAZOLE [Concomitant]
  3. MEBEVERINE [Concomitant]
  4. AMITRIPTYLINE [Concomitant]

REACTIONS (12)
  - Pulmonary sarcoidosis [Recovering/Resolving]
  - Lung consolidation [Recovering/Resolving]
  - Cough [Recovering/Resolving]
  - Mucosal hyperaemia [Recovering/Resolving]
  - Breath sounds abnormal [Recovering/Resolving]
  - Tachycardia [Recovering/Resolving]
  - Influenza like illness [Recovering/Resolving]
  - Arthralgia [Recovering/Resolving]
  - Fatigue [Recovering/Resolving]
  - Myalgia [Recovering/Resolving]
  - Pyrexia [Recovering/Resolving]
  - Chills [Recovering/Resolving]
